FAERS Safety Report 22320571 (Version 1)
Quarter: 2023Q2

REPORT INFORMATION
  Report Type: Report from Study
  Country: US (occurrence: US)
  Receive Date: 20230515
  Receipt Date: 20230515
  Transmission Date: 20230722
  Serious: Yes (Life-Threatening, Other)
  Sender: FDA-Public Use
  Company Number: US-JNJFOC-20230519675

PATIENT
  Age: 92 Year
  Sex: Female

DRUGS (2)
  1. BALVERSA [Suspect]
     Active Substance: ERDAFITINIB
     Indication: Product used for unknown indication
     Route: 065
  2. BALVERSA [Suspect]
     Active Substance: ERDAFITINIB
     Route: 065

REACTIONS (4)
  - Full blood count abnormal [Recovering/Resolving]
  - White blood cell count decreased [Recovering/Resolving]
  - Renal neoplasm [Recovering/Resolving]
  - Product dispensing error [Unknown]

NARRATIVE: CASE EVENT DATE: 20230428
